FAERS Safety Report 15440240 (Version 2)
Quarter: 2018Q4

REPORT INFORMATION
  Report Type: Report from Study
  Country: DO (occurrence: DO)
  Receive Date: 20180928
  Receipt Date: 20181011
  Transmission Date: 20190204
  Serious: Yes (Other)
  Sender: FDA-Public Use
  Company Number: PHHY2018DO107591

PATIENT
  Sex: Female
  Weight: 70.3 kg

DRUGS (1)
  1. GILENYA [Suspect]
     Active Substance: FINGOLIMOD HYDROCHLORIDE
     Indication: MULTIPLE SCLEROSIS
     Dosage: 0.5 MG, QD
     Route: 048
     Dates: start: 20170831

REACTIONS (5)
  - Oropharyngeal pain [Recovering/Resolving]
  - Uterine cyst [Unknown]
  - Concomitant disease aggravated [Unknown]
  - Gait disturbance [Unknown]
  - Muscle atrophy [Unknown]
